FAERS Safety Report 7449051-3 (Version None)
Quarter: 2011Q2

REPORT INFORMATION
  Report Type: 
  Country: None (occurrence: None)
  Receive Date: 20110429
  Receipt Date: 20090310
  Transmission Date: 20111010
  Serious: Yes (Other)
  Sender: FDA-Public Use
  Company Number: DE-GENENTECH-317628

PATIENT
  Age: 90 Year
  Sex: Male

DRUGS (2)
  1. EYE DROPS (UNK INGREDIENTS) [Concomitant]
     Indication: PRODUCT USED FOR UNKNOWN INDICATION
  2. LUCENTIS [Suspect]
     Indication: MACULAR DEGENERATION
     Dosage: UNK
     Route: 031
     Dates: start: 20081223

REACTIONS (5)
  - PNEUMONIA [None]
  - EYE HAEMORRHAGE [None]
  - MACULAR DEGENERATION [None]
  - VISUAL ACUITY REDUCED [None]
  - EYELID MARGIN CRUSTING [None]
